FAERS Safety Report 6815513-2 (Version None)
Quarter: 2010Q3

REPORT INFORMATION
  Report Type: 
  Country: None (occurrence: None)
  Receive Date: 20100702
  Receipt Date: 20100630
  Transmission Date: 20110219
  Serious: Yes (Death)
  Sender: FDA-Public Use
  Company Number: CHPA2010DE10073

PATIENT
  Age: 66 Year
  Sex: Male

DRUGS (1)
  1. SCOPOLAMINE [Suspect]
     Indication: PALLIATIVE CARE
     Dosage: UNK,UNK
     Route: 062

REACTIONS (3)
  - CONCOMITANT DISEASE PROGRESSION [None]
  - HYPERHIDROSIS [None]
  - OFF LABEL USE [None]
